FAERS Safety Report 7269157-1 (Version None)
Quarter: 2011Q1

REPORT INFORMATION
  Report Type: 
  Country: None (occurrence: None)
  Receive Date: 20110202
  Receipt Date: 20110127
  Transmission Date: 20110831
  Serious: No
  Sender: FDA-Public Use
  Company Number: US-PFIZER INC-2011019984

PATIENT
  Sex: Female
  Weight: 50.794 kg

DRUGS (1)
  1. PREMARIN [Suspect]
     Indication: VAGINAL DISORDER
     Dosage: 2 MG, 2X/WEEK
     Route: 067
     Dates: start: 20110123, end: 20110127

REACTIONS (1)
  - HYPERHIDROSIS [None]
